FAERS Safety Report 20155410 (Version 1)
Quarter: 2021Q4

REPORT INFORMATION
  Report Type: Spontaneous
  Country: ES (occurrence: ES)
  Receive Date: 20211207
  Receipt Date: 20211207
  Transmission Date: 20220303
  Serious: Yes (Life-Threatening, Hospitalization)
  Sender: FDA-Public Use
  Company Number: None

PATIENT
  Age: 72 Year
  Sex: Male

DRUGS (4)
  1. CARVEDILOL [Suspect]
     Active Substance: CARVEDILOL
     Indication: Hepatic cirrhosis
     Dosage: CARVEDILOL (2431A) , UNIT DOSE : 6.25 MG
     Route: 048
     Dates: start: 20210831, end: 20210902
  2. QUETIAPINE [Suspect]
     Active Substance: QUETIAPINE
     Dosage: 50 MG ,QUETIAPINA (1136A)
     Route: 048
     Dates: start: 20210827
  3. SPIRONOLACTONE [Suspect]
     Active Substance: SPIRONOLACTONE
     Indication: Hepatic cirrhosis
     Dosage: ESPIRONOLACTONA (326A) , UNIT DOSE : 100 MG
     Route: 048
     Dates: start: 20210831, end: 20210902
  4. SOMATOSTATIN [Concomitant]
     Active Substance: SOMATOSTATIN
     Indication: Hepatic cirrhosis
     Dosage: SOMATOSTATINA (1765A) , UNIT DOSE : 6 MG
     Route: 042
     Dates: start: 20210825, end: 20210831

REACTIONS (1)
  - Thrombocytopenia [Recovering/Resolving]

NARRATIVE: CASE EVENT DATE: 20210902
